FAERS Safety Report 4830303-8 (Version None)
Quarter: 2005Q4

REPORT INFORMATION
  Report Type: 
  Country: None (occurrence: None)
  Receive Date: 20051117
  Receipt Date: 20051107
  Transmission Date: 20060501
  Serious: Yes (Other)
  Sender: FDA-Public Use
  Company Number: FR-BRISTOL-MYERS SQUIBB COMPANY-13174651

PATIENT
  Age: 41 Year
  Sex: Female

DRUGS (6)
  1. TAXOL [Suspect]
     Indication: BREAST CANCER
     Route: 042
  2. ESOMEPRAZOLE [Interacting]
     Indication: ABDOMINAL PAIN UPPER
     Route: 048
  3. TRASTUZUMAB [Interacting]
     Indication: BREAST CANCER
     Route: 042
  4. DEXAMETHASONE [Concomitant]
     Indication: PREMEDICATION
  5. DEXCHLORPHENIRAMINE [Concomitant]
     Indication: PREMEDICATION
  6. RANITIDINE [Concomitant]
     Indication: PREMEDICATION

REACTIONS (2)
  - CYTOLYTIC HEPATITIS [None]
  - DRUG INTERACTION [None]
